FAERS Safety Report 21142156 (Version 4)
Quarter: 2023Q1

REPORT INFORMATION
  Report Type: Spontaneous
  Country: US (occurrence: US)
  Receive Date: 20220728
  Receipt Date: 20230201
  Transmission Date: 20230417
  Serious: Yes (Hospitalization, Other)
  Sender: FDA-Public Use
  Company Number: US-OTSUKA-2022_037993

PATIENT
  Age: 79 Year
  Sex: Female
  Weight: 52.16 kg

DRUGS (4)
  1. SAMSCA [Suspect]
     Active Substance: TOLVAPTAN
     Indication: Blood sodium decreased
     Dosage: 15 MG, QD (EVERY MORNING)
     Route: 065
     Dates: start: 202111
  2. SAMSCA [Suspect]
     Active Substance: TOLVAPTAN
     Indication: Inappropriate antidiuretic hormone secretion
  3. SAMSCA [Suspect]
     Active Substance: TOLVAPTAN
     Indication: Blood osmolarity decreased
  4. SAMSCA [Suspect]
     Active Substance: TOLVAPTAN
     Indication: Hyponatraemia

REACTIONS (11)
  - Liver operation [Unknown]
  - Aspiration pleural cavity [Recovered/Resolved]
  - Blood sodium decreased [Unknown]
  - Infection [Recovered/Resolved]
  - Sepsis [Recovered/Resolved]
  - Abdominal pain lower [Recovered/Resolved]
  - Inability to afford medication [Unknown]
  - Product dose omission issue [Unknown]
  - Product use issue [Unknown]
  - Incorrect product administration duration [Unknown]
  - Product use in unapproved indication [Unknown]

NARRATIVE: CASE EVENT DATE: 20220715
